FAERS Safety Report 16158117 (Version 2)
Quarter: 2019Q2

REPORT INFORMATION
  Report Type: Spontaneous
  Country: US (occurrence: US)
  Receive Date: 20190404
  Receipt Date: 20190501
  Transmission Date: 20190711
  Serious: Yes (Other)
  Sender: FDA-Public Use
  Company Number: US-BAYER-2019-064863

PATIENT
  Age: 18 Year
  Sex: Female

DRUGS (3)
  1. CYTOTEC [Concomitant]
     Active Substance: MISOPROSTOL
     Dosage: UNK
     Dates: start: 20190401
  2. KYLEENA [Suspect]
     Active Substance: LEVONORGESTREL
     Indication: MENORRHAGIA
     Dosage: 17.5 MCG/24HR, CONT
     Route: 015
     Dates: start: 20190401, end: 20190401
  3. BETADINE [Concomitant]
     Active Substance: POVIDONE-IODINE
     Dosage: UNK
     Route: 061
     Dates: start: 20190401, end: 20190401

REACTIONS (5)
  - Lymphadenopathy [Recovered/Resolved]
  - Cough [None]
  - Anaphylactic reaction [None]
  - Swelling face [None]
  - Pruritus [None]

NARRATIVE: CASE EVENT DATE: 20190401
